FAERS Safety Report 7477903-7 (Version None)
Quarter: 2011Q2

REPORT INFORMATION
  Report Type: 
  Country: None (occurrence: None)
  Receive Date: 20110513
  Receipt Date: 20100116
  Transmission Date: 20111010
  Serious: Yes (Death, Other)
  Sender: FDA-Public Use
  Company Number: US-BAYER-201011543NA

PATIENT
  Age: 58 Year
  Sex: Male

DRUGS (21)
  1. METOPROLOL SUCCINATE [Concomitant]
     Dosage: 25 MG, UNK
     Route: 048
     Dates: start: 20050328
  2. GLIPIZIDE [Concomitant]
     Dosage: 10 MG, UNK
     Route: 048
     Dates: start: 20050328
  3. SIMVASTATIN [Concomitant]
     Dosage: 80 MG, UNK
     Route: 048
     Dates: start: 20050329
  4. LEVOFLOXACIN [Concomitant]
     Dosage: ONCE
     Route: 042
     Dates: start: 20050330
  5. FRESH FROZEN PLASMA [Concomitant]
     Dosage: 8 U, UNK
     Dates: start: 20050330
  6. ACETYLSALICYLIC ACID SRT [Concomitant]
     Dosage: UNK
     Dates: start: 20050328
  7. VERAPAMIL [Concomitant]
     Dosage: UNK
     Route: 048
     Dates: start: 20050328
  8. HEPARIN [Concomitant]
     Dosage: UNK
     Route: 042
     Dates: start: 20050330
  9. PLATELETS [Concomitant]
     Dosage: 10 U, UNK
     Dates: start: 20050330
  10. TRASYLOL [Suspect]
     Indication: CORONARY ARTERY BYPASS
     Dosage: 200 ML BOLUS THEN 50 CC/HR
     Route: 042
     Dates: start: 20050330, end: 20050330
  11. PREDNISONE [Concomitant]
     Dosage: 60 MG, UNK
     Route: 048
     Dates: start: 20050328
  12. TORSEMIDE [Concomitant]
     Dosage: 20 MG, UNK
     Route: 048
     Dates: start: 20050328
  13. VANCOMYCIN [Concomitant]
     Dosage: 1 G, BID
     Route: 042
     Dates: start: 20050330
  14. CRYOPRECIPITATES [Concomitant]
     Dosage: 20 U, UNK
     Dates: start: 20050330
  15. CEFUROXIME [Concomitant]
     Dosage: 1.5 G, UNK
     Route: 042
     Dates: start: 20050330
  16. TRASYLOL [Suspect]
     Indication: AORTIC VALVE REPLACEMENT
     Dosage: 200 ML BOLUS THEN 50 CC/HOUR PER PUMP
     Route: 042
     Dates: start: 20050330, end: 20050330
  17. TRASYLOL [Suspect]
     Indication: AORTIC ANEURYSM REPAIR
  18. INSULIN HUMAN [Concomitant]
     Dosage: UNK
     Route: 058
     Dates: start: 20050329
  19. METYPRED [METHYLPREDNISOLONE] [Concomitant]
     Dosage: UNK
     Dates: start: 20050329
  20. PROTAMINE SULFATE [Concomitant]
     Dosage: 250 MG, BID
     Route: 042
     Dates: start: 20050330
  21. RED BLOOD CELLS [Concomitant]
     Dosage: 8 U, UNK
     Dates: start: 20050330

REACTIONS (14)
  - CEREBROVASCULAR ACCIDENT [None]
  - RENAL IMPAIRMENT [None]
  - RENAL INJURY [None]
  - RENAL FAILURE [None]
  - ANXIETY [None]
  - DEATH [None]
  - UNEVALUABLE EVENT [None]
  - DEPRESSION [None]
  - PAIN [None]
  - ORGAN FAILURE [None]
  - ANHEDONIA [None]
  - CARDIAC DISORDER [None]
  - FEAR [None]
  - INJURY [None]
